FAERS Safety Report 10137127 (Version 1)
Quarter: 2014Q2

REPORT INFORMATION
  Report Type: Spontaneous
  Country: US (occurrence: US)
  Receive Date: 20140429
  Receipt Date: 20140429
  Transmission Date: 20141212
  Serious: No
  Sender: FDA-Public Use
  Company Number: US-ABBVIE-14P-163-1222522-00

PATIENT
  Age: 47 Year
  Sex: Male
  Weight: 130.3 kg

DRUGS (3)
  1. ANDROGEL [Suspect]
     Indication: BLOOD TESTOSTERONE DECREASED
     Dosage: 4 PUMPS DAILY
     Route: 061
     Dates: start: 20140303
  2. ANDROGEL [Suspect]
     Dosage: 2 PUMPS DAILY
     Route: 061
     Dates: start: 201403, end: 201403
  3. ANDROGEL [Suspect]
     Dosage: 1 PUMP DAILY
     Route: 061
     Dates: start: 201403

REACTIONS (3)
  - Incorrect dose administered [Not Recovered/Not Resolved]
  - Therapeutic response changed [Not Recovered/Not Resolved]
  - Restless legs syndrome [Not Recovered/Not Resolved]
